FAERS Safety Report 5768150-5 (Version None)
Quarter: 2008Q2

REPORT INFORMATION
  Report Type: 
  Country: None (occurrence: None)
  Receive Date: 20080609
  Receipt Date: 20080527
  Transmission Date: 20081010
  Serious: Yes (Death, Other)
  Sender: FDA-Public Use
  Company Number: 2007-02489

PATIENT
  Age: 71 Year
  Sex: Female
  Weight: 45 kg

DRUGS (11)
  1. VELCADE [Suspect]
     Indication: MULTIPLE MYELOMA
     Dosage: 1.80 MG, INTRAVENOUS; 1.7MG, INTRAVENOUS
     Route: 042
     Dates: start: 20070312, end: 20070412
  2. VELCADE [Suspect]
     Indication: MULTIPLE MYELOMA
     Dosage: 1.80 MG, INTRAVENOUS; 1.7MG, INTRAVENOUS
     Route: 042
     Dates: start: 20070507, end: 20080408
  3. DEXAMETHASONE TAB [Concomitant]
  4. AMOBAN (ZOPICLONE) [Concomitant]
  5. ISOSORBIDE DINITRATE [Concomitant]
  6. AMLODIPINE BESYLATE [Concomitant]
  7. METHYCOBAL (MECOBALAMIN) [Concomitant]
  8. JUVELA (TOCOPHEROL) [Concomitant]
  9. ISODINE (POVIDONE-IODINE) [Concomitant]
  10. GLYCYRRHIZIC ACID (GLYCYRRHIZIC ACID) [Concomitant]
  11. MOBIC [Concomitant]

REACTIONS (12)
  - ABDOMINAL DISTENSION [None]
  - ANOREXIA [None]
  - BACK PAIN [None]
  - DIARRHOEA [None]
  - DISEASE PROGRESSION [None]
  - FATIGUE [None]
  - LEUKOPENIA [None]
  - NAUSEA [None]
  - NEUTROPENIA [None]
  - STOMACH DISCOMFORT [None]
  - STOMATITIS [None]
  - THROMBOCYTOPENIA [None]
